FAERS Safety Report 5326321-6 (Version None)
Quarter: 2007Q2

REPORT INFORMATION
  Report Type: 
  Country: None (occurrence: None)
  Receive Date: 20070514
  Receipt Date: 20070514
  Transmission Date: 20071010
  Serious: Yes (Life-Threatening)
  Sender: FDA-Public Use
  Company Number: None

PATIENT
  Age: 4 Day
  Sex: Male
  Weight: 0.63 kg

DRUGS (9)
  1. PEDIAPROFEN 10 MG/ML OVATION PHAMACEUTICALS [Suspect]
     Dosage: 10MG/KG Q24 H X1 IV BOLUS 5 MG/KG Q24 H X2 IV BOLUS
     Route: 040
     Dates: start: 20070426, end: 20070427
  2. AMPICILLIN [Concomitant]
  3. GENTAMICIN [Concomitant]
  4. CAFFEINE [Concomitant]
  5. CUROSURF [Concomitant]
  6. FENTANYL [Concomitant]
  7. MIDAZOLAM HCL [Concomitant]
  8. CALCIUM GLUCONATE [Concomitant]
  9. VANCOMYCIN [Concomitant]

REACTIONS (2)
  - OXYGEN SATURATION DECREASED [None]
  - PULMONARY HYPERTENSION [None]
